FAERS Safety Report 4400867-7 (Version None)
Quarter: 2004Q3

REPORT INFORMATION
  Report Type: 
  Country: None (occurrence: None)
  Receive Date: 20040907
  Receipt Date: 20030714
  Transmission Date: 20050211
  Serious: No
  Sender: FDA-Public Use
  Company Number: US-BRISTOL-MYERS SQUIBB COMPANY-12324851

PATIENT
  Age: 59 Year
  Sex: Female

DRUGS (10)
  1. COUMADIN [Suspect]
     Dosage: HAD BEEN TAKING 2MG PRIOR TO 01-JUL-03.
     Route: 048
     Dates: start: 20030401
  2. PAXIL [Concomitant]
  3. LIPITOR [Concomitant]
  4. DIGOXIN [Concomitant]
  5. LISINOPRIL [Concomitant]
  6. ALDACTONE [Concomitant]
  7. FUROSEMIDE [Concomitant]
  8. GLUCOVANCE [Concomitant]
  9. INSULIN [Concomitant]
  10. PRIMIDONE [Concomitant]

REACTIONS (1)
  - DRUG INEFFECTIVE [None]
